FAERS Safety Report 7265203-X (Version None)
Quarter: 2011Q1

REPORT INFORMATION
  Report Type: 
  Country: None (occurrence: None)
  Receive Date: 20110131
  Receipt Date: 20110118
  Transmission Date: 20110831
  Serious: Yes (Death, Hospitalization)
  Sender: FDA-Public Use
  Company Number: US-ENDO PHARMACEUTICALS INC.-VALS20100124

PATIENT
  Sex: Female

DRUGS (1)
  1. VALSTAR PRESERVATIVE FREE [Suspect]
     Route: 043
     Dates: start: 20101011, end: 20101011

REACTIONS (1)
  - CARDIOPULMONARY FAILURE [None]
